FAERS Safety Report 17471094 (Version 1)
Quarter: 2020Q1

REPORT INFORMATION
  Report Type: Spontaneous
  Country: US (occurrence: US)
  Receive Date: 20200227
  Receipt Date: 20200227
  Transmission Date: 20200409
  Serious: No
  Sender: FDA-Public Use
  Company Number: US-009507513-2002USA009779

PATIENT
  Age: 74 Year
  Sex: Female

DRUGS (12)
  1. DULOXETINE HYDROCHLORIDE. [Concomitant]
     Active Substance: DULOXETINE HYDROCHLORIDE
  2. AFRIN (ASPIRIN (+) CHLORPHENIRAMINE MALEATE (+) PHENYLEPHRINE HYDROCHL [Concomitant]
  3. XARELTO [Concomitant]
     Active Substance: RIVAROXABAN
  4. ALPRAZOLAM. [Concomitant]
     Active Substance: ALPRAZOLAM
  5. ACYCLOVIR. [Concomitant]
     Active Substance: ACYCLOVIR
  6. DICLOFENAC [Concomitant]
     Active Substance: DICLOFENAC
  7. MINERALS (UNSPECIFIED) (+) VITAMINS (UNSPECIFIED) [Concomitant]
     Active Substance: MINERALS\VITAMINS
  8. ANASTROZOLE. [Concomitant]
     Active Substance: ANASTROZOLE
  9. FAMOTIDINE. [Concomitant]
     Active Substance: FAMOTIDINE
  10. FOSAMAX [Suspect]
     Active Substance: ALENDRONATE SODIUM
     Indication: OSTEOPOROSIS
     Dosage: 70 MILLIGRAM, 1 TABLET EVERY 7 DAYS
     Route: 048
     Dates: start: 20200212
  11. ZYRTEC [Concomitant]
     Active Substance: CETIRIZINE HYDROCHLORIDE
  12. PRAVASTATIN. [Concomitant]
     Active Substance: PRAVASTATIN

REACTIONS (5)
  - Anxiety [Not Recovered/Not Resolved]
  - Drug hypersensitivity [Unknown]
  - Urticaria [Unknown]
  - Abdominal discomfort [Not Recovered/Not Resolved]
  - Overdose [Unknown]

NARRATIVE: CASE EVENT DATE: 202002
